FAERS Safety Report 22292643 (Version 3)
Quarter: 2023Q2

REPORT INFORMATION
  Report Type: Report from Study
  Country: CH (occurrence: None)
  Receive Date: 20230508
  Receipt Date: 20230609
  Transmission Date: 20230722
  Serious: Yes (Hospitalization)
  Sender: FDA-Public Use
  Company Number: CH-ROCHE-3344291

PATIENT
  Age: 70 Year
  Sex: Male

DRUGS (9)
  1. VENETOCLAX [Suspect]
     Active Substance: VENETOCLAX
     Indication: Chronic lymphocytic leukaemia
     Dosage: LAST DOSE: 12/APR/2023
     Route: 048
     Dates: start: 20220705
  2. OBINUTUZUMAB [Suspect]
     Active Substance: OBINUTUZUMAB
     Indication: Chronic lymphocytic leukaemia
     Dosage: LAST DOSE: 08/NOV/2022
     Route: 042
     Dates: start: 20220614
  3. ATORVASTATIN [Concomitant]
     Active Substance: ATORVASTATIN
  4. ALLOPURINOL [Concomitant]
     Active Substance: ALLOPURINOL
  5. VITAMIN D3 [Concomitant]
     Active Substance: CHOLECALCIFEROL
  6. MAGNESIUM [Concomitant]
     Active Substance: MAGNESIUM
  7. PANTOPRAZOLE [Concomitant]
     Active Substance: PANTOPRAZOLE
  8. PHENPROCOUMONUM [Concomitant]
  9. RIVAROXABAN [Concomitant]
     Active Substance: RIVAROXABAN

REACTIONS (1)
  - Sinonasal papilloma [Recovered/Resolved with Sequelae]

NARRATIVE: CASE EVENT DATE: 20230413
